FAERS Safety Report 23788745 (Version 1)
Quarter: 2024Q2

REPORT INFORMATION
  Report Type: Spontaneous
  Country: CN (occurrence: CN)
  Receive Date: 20240426
  Receipt Date: 20240426
  Transmission Date: 20240716
  Serious: Yes (Other)
  Sender: FDA-Public Use
  Company Number: CN-PFIZER INC-PV202400053499

PATIENT
  Age: 36 Year
  Sex: Male
  Weight: 65 kg

DRUGS (3)
  1. METHYLPREDNISOLONE SODIUM SUCCINATE [Suspect]
     Active Substance: METHYLPREDNISOLONE SODIUM SUCCINATE
     Indication: Exophthalmos
     Dosage: 500 MG, 1X/DAY
     Route: 041
     Dates: start: 20240419, end: 20240419
  2. METHYLPREDNISOLONE SODIUM SUCCINATE [Suspect]
     Active Substance: METHYLPREDNISOLONE SODIUM SUCCINATE
     Indication: Exophthalmos
     Dosage: 120 MG, 1X/DAY
     Route: 041
     Dates: start: 20240420, end: 20240420
  3. SODIUM CHLORIDE [Concomitant]
     Active Substance: SODIUM CHLORIDE
     Indication: Vehicle solution use
     Dosage: 250 ML, ONCE IN 11 DAYS
     Route: 041
     Dates: start: 20240419, end: 20240419

REACTIONS (4)
  - Blood potassium decreased [Not Recovered/Not Resolved]
  - Blood glucose increased [Unknown]
  - Loss of consciousness [Recovered/Resolved]
  - Fall [Unknown]

NARRATIVE: CASE EVENT DATE: 20240420
